FAERS Safety Report 9627697 (Version 2)
Quarter: 2013Q4

REPORT INFORMATION
  Report Type: Not Available
  Country: US (occurrence: US)
  Receive Date: 20131016
  Receipt Date: 20131016
  Transmission Date: 20140711
  Serious: Yes (Other)
  Sender: FDA-Public Use
  Company Number: US-LUNDBECK-DKLU1091225

PATIENT
  Age: 12 Year
  Sex: Female
  Weight: 83 kg

DRUGS (12)
  1. SABRIL (TABLET) [Suspect]
     Indication: COMPLEX PARTIAL SEIZURES
     Dates: start: 201301
  2. SABRIL (TABLET) [Suspect]
     Indication: INFANTILE SPASMS
     Dates: start: 201303
  3. SABRIL (TABLET) [Suspect]
     Dates: start: 201303
  4. SABRIL (TABLET) [Suspect]
  5. SABRIL (TABLET) [Suspect]
  6. SABRIL (TABLET) [Suspect]
  7. SABRIL (TABLET) [Suspect]
  8. TRANXENE [Concomitant]
     Indication: PRODUCT USED FOR UNKNOWN INDICATION
  9. VIMPAT [Concomitant]
     Indication: PRODUCT USED FOR UNKNOWN INDICATION
  10. ZONISAMIDE [Concomitant]
     Indication: PRODUCT USED FOR UNKNOWN INDICATION
  11. ZONISAMIDE [Concomitant]
  12. DILANTIN [Concomitant]
     Indication: PRODUCT USED FOR UNKNOWN INDICATION

REACTIONS (4)
  - Convulsion [Recovering/Resolving]
  - Fatigue [Unknown]
  - Somnolence [Unknown]
  - Drug dose omission [Recovered/Resolved]
